FAERS Safety Report 5787728-6 (Version None)
Quarter: 2008Q2

REPORT INFORMATION
  Report Type: 
  Country: None (occurrence: None)
  Receive Date: 20080625
  Receipt Date: 20080620
  Transmission Date: 20081010
  Serious: Yes (Disabling)
  Sender: FDA-Public Use
  Company Number: GB-ASTRAZENECA-2008GB01157

PATIENT
  Age: 61 Year
  Sex: Female

DRUGS (6)
  1. OMEPRAZOLE [Suspect]
     Indication: BARRETT'S OESOPHAGUS
     Route: 048
     Dates: start: 20080318, end: 20080605
  2. OMEPRAZOLE [Suspect]
     Route: 048
  3. LANSOPRAZOLE [Suspect]
     Indication: BARRETT'S OESOPHAGUS
     Route: 048
     Dates: start: 20071022, end: 20080425
  4. LANSOPRAZOLE [Suspect]
     Route: 048
  5. ERYTHROMYCIN [Concomitant]
     Indication: INFECTION
     Route: 048
     Dates: start: 20080123, end: 20080130
  6. QVAR 40 [Concomitant]
     Route: 055
     Dates: start: 20070810

REACTIONS (2)
  - ARTHRALGIA [None]
  - MYALGIA [None]
